FAERS Safety Report 23321924 (Version 1)
Quarter: 2023Q4

REPORT INFORMATION
  Report Type: Spontaneous
  Country: US (occurrence: US)
  Receive Date: 20231220
  Receipt Date: 20231220
  Transmission Date: 20240110
  Serious: No
  Sender: FDA-Public Use
  Company Number: US-PFIZER INC-202300288418

PATIENT
  Age: 71 Year
  Sex: Female
  Weight: 81.19 kg

DRUGS (1)
  1. PAXLOVID [Suspect]
     Active Substance: NIRMATRELVIR\RITONAVIR
     Indication: COVID-19 treatment
     Dosage: ONE PILL SUPPOSED TO BE WHITE AND ONE PILL IS SUPPOSED TO BE PINK

REACTIONS (1)
  - Product packaging confusion [Unknown]
